FAERS Safety Report 24443195 (Version 2)
Quarter: 2024Q4

REPORT INFORMATION
  Report Type: Report from Study
  Country: BR (occurrence: BR)
  Receive Date: 20241016
  Receipt Date: 20241102
  Transmission Date: 20250115
  Serious: Yes (Hospitalization, Other)
  Sender: NOVARTIS
  Company Number: BR-002147023-NVSC2024BR159787

PATIENT
  Age: 62 Year
  Sex: Female

DRUGS (4)
  1. KISQALI [Suspect]
     Active Substance: RIBOCICLIB
     Indication: Product used for unknown indication
     Dosage: UNK
     Route: 065
  2. KISQALI [Suspect]
     Active Substance: RIBOCICLIB
     Dosage: UNK
     Route: 065
  3. ANASTROZOLE [Concomitant]
     Active Substance: ANASTROZOLE
     Indication: Product used for unknown indication
     Dosage: UNK
     Route: 065
  4. EXEMESTANE [Concomitant]
     Active Substance: EXEMESTANE
     Indication: Product used for unknown indication
     Dosage: 25 MG
     Route: 065

REACTIONS (26)
  - Nausea [Unknown]
  - Feeding disorder [Recovered/Resolved]
  - Anaemia [Recovered/Resolved]
  - Decreased immune responsiveness [Recovered/Resolved]
  - Oesophageal perforation [Unknown]
  - Oesophageal obstruction [Recovering/Resolving]
  - Diarrhoea [Unknown]
  - Malaise [Not Recovered/Not Resolved]
  - Vomiting [Unknown]
  - Weight decreased [Recovering/Resolving]
  - Pain [Not Recovered/Not Resolved]
  - Bone disorder [Unknown]
  - Bone pain [Unknown]
  - Arthralgia [Not Recovered/Not Resolved]
  - Nodule [Unknown]
  - Dysphagia [Recovered/Resolved]
  - Dehydration [Recovered/Resolved]
  - Oesophageal pain [Recovered/Resolved]
  - Gastritis [Not Recovered/Not Resolved]
  - Gait disturbance [Not Recovered/Not Resolved]
  - Throat tightness [Recovered/Resolved]
  - Retching [Recovered/Resolved]
  - Retching [Unknown]
  - Dysphagia [Recovered/Resolved]
  - Asthenia [Not Recovered/Not Resolved]
  - Feeling abnormal [Unknown]

NARRATIVE: CASE EVENT DATE: 20240801
